FAERS Safety Report 10231192 (Version 1)
Quarter: 2014Q2

REPORT INFORMATION
  Report Type: Spontaneous
  Country: GB (occurrence: GB)
  Receive Date: 20140611
  Receipt Date: 20140611
  Transmission Date: 20141212
  Serious: Yes (Other)
  Sender: FDA-Public Use
  Company Number: PHHY2014GB068218

PATIENT
  Age: 92 Year
  Sex: Female
  Weight: 66.5 kg

DRUGS (9)
  1. TRAMADOL [Suspect]
     Indication: ANALGESIC THERAPY
     Dosage: 50 MG, QID
     Route: 048
     Dates: start: 20140516, end: 20140516
  2. TRAMADOL [Suspect]
     Dosage: 100 MG, QID
     Route: 048
     Dates: start: 20140517, end: 20140523
  3. ENOXAPARIN [Concomitant]
     Indication: PROPHYLAXIS
     Dates: start: 20140410, end: 20140522
  4. FUROSEMIDE [Concomitant]
  5. PARACETAMOL [Concomitant]
  6. RAMIPRIL [Concomitant]
  7. SENNA [Concomitant]
  8. ALENDRONIC ACID [Concomitant]
  9. MACROGOL [Concomitant]

REACTIONS (1)
  - Platelet count decreased [Not Recovered/Not Resolved]
